FAERS Safety Report 5597731-7 (Version None)
Quarter: 2008Q1

REPORT INFORMATION
  Report Type: 
  Country: None (occurrence: None)
  Receive Date: 20080121
  Receipt Date: 20080111
  Transmission Date: 20080703
  Serious: Yes (Hospitalization, Other)
  Sender: FDA-Public Use
  Company Number: IE-ABBOTT-03P-229-0215930-00

PATIENT
  Sex: Female

DRUGS (11)
  1. HUMIRA [Suspect]
     Indication: RHEUMATOID ARTHRITIS
     Route: 058
     Dates: start: 20030110, end: 20030404
  2. METHOTREXATE [Concomitant]
     Indication: RHEUMATOID ARTHRITIS
     Route: 048
  3. METHYLPREDNISOLONE [Concomitant]
     Indication: STEROID THERAPY
     Route: 042
     Dates: start: 20021201, end: 20021201
  4. ESOMEPRAZOLE MAGNESIUM [Concomitant]
     Route: 048
  5. SEROXAT [Concomitant]
     Route: 048
  6. CELECOXIB [Concomitant]
     Indication: ANALGESIA
     Route: 048
  7. ZOPICLONE [Concomitant]
  8. FOLIC ACID [Concomitant]
     Route: 048
  9. KLINOGEST [Concomitant]
     Indication: HORMONE REPLACEMENT THERAPY
     Route: 048
  10. PREDNISOLONE [Concomitant]
     Indication: DRUG USE FOR UNKNOWN INDICATION
     Route: 048
  11. PREDNISOLONE [Concomitant]

REACTIONS (5)
  - ATRIAL FIBRILLATION [None]
  - CARDIAC TAMPONADE [None]
  - LIVER FUNCTION TEST ABNORMAL [None]
  - PERICARDITIS [None]
  - RENAL FAILURE ACUTE [None]
